FAERS Safety Report 5167598-X (Version None)
Quarter: 2006Q4

REPORT INFORMATION
  Report Type: 
  Country: None (occurrence: None)
  Receive Date: 20060919
  Receipt Date: 20060727
  Transmission Date: 20070319
  Serious: No
  Sender: FDA-Public Use
  Company Number: BDI-008479

PATIENT
  Age: 47 Year
  Sex: Female
  Weight: 134.09 kg

DRUGS (1)
  1. MULTIHANCE [Suspect]
     Indication: NUCLEAR MAGNETIC RESONANCE IMAGING BRAIN
     Dosage: 20 ML ONCE IV
     Route: 042
     Dates: start: 20060727, end: 20060727

REACTIONS (3)
  - PRURITUS [None]
  - RETCHING [None]
  - URTICARIA [None]
